FAERS Safety Report 5355634-7 (Version None)
Quarter: 2007Q2

REPORT INFORMATION
  Report Type: 
  Country: None (occurrence: None)
  Receive Date: 20070613
  Receipt Date: 20070608
  Transmission Date: 20071010
  Serious: Yes (Other)
  Sender: FDA-Public Use
  Company Number: ES-BAYER-200713234GDS

PATIENT
  Age: 63 Year
  Sex: Male

DRUGS (2)
  1. NEXAVAR [Suspect]
     Indication: HEPATIC NEOPLASM MALIGNANT
     Route: 048
     Dates: start: 20070515, end: 20070530
  2. NEXAVAR [Suspect]
     Route: 048
     Dates: start: 20070530, end: 20070604

REACTIONS (1)
  - DISORIENTATION [None]
